FAERS Safety Report 20981573 (Version 1)
Quarter: 2022Q2

REPORT INFORMATION
  Report Type: Report from Study
  Country: BE (occurrence: BE)
  Receive Date: 20220620
  Receipt Date: 20220620
  Transmission Date: 20220721
  Serious: Yes (Death, Other)
  Sender: FDA-Public Use
  Company Number: BE-BoehringerIngelheim-2021-BI-143566

PATIENT
  Age: 59 Year
  Sex: Male
  Weight: 83.5 kg

DRUGS (5)
  1. MEDROL [Suspect]
     Active Substance: METHYLPREDNISOLONE
     Indication: Antisynthetase syndrome
     Dosage: 4 MG DAILY
     Route: 048
     Dates: start: 20190321
  2. RITUXIMAB [Suspect]
     Active Substance: RITUXIMAB
     Indication: Antisynthetase syndrome
     Route: 042
     Dates: start: 20191127, end: 20220112
  3. NINTEDANIB ESYLATE [Suspect]
     Active Substance: NINTEDANIB ESYLATE
     Indication: Pulmonary fibrosis
     Dosage: 150 MG 2X/DAY
     Route: 048
     Dates: start: 20210322, end: 202112
  4. NINTEDANIB ESYLATE [Suspect]
     Active Substance: NINTEDANIB ESYLATE
     Dosage: 100 MG 2X/DAY
     Route: 048
     Dates: start: 202112
  5. NINTEDANIB ESYLATE [Suspect]
     Active Substance: NINTEDANIB ESYLATE
     Dosage: 150 MG 2X/DAY
     Route: 048

REACTIONS (3)
  - Pneumocystis jirovecii pneumonia [Fatal]
  - Acute respiratory failure [Fatal]
  - Diarrhoea [Recovered/Resolved]

NARRATIVE: CASE EVENT DATE: 20210101
